FAERS Safety Report 7912432-5 (Version None)
Quarter: 2011Q4

REPORT INFORMATION
  Report Type: 
  Country: None (occurrence: None)
  Receive Date: 20111114
  Receipt Date: 20111108
  Transmission Date: 20120403
  Serious: Yes (Death, Other)
  Sender: FDA-Public Use
  Company Number: US-PFIZER INC-2011274293

PATIENT

DRUGS (1)
  1. ZYVOX [Suspect]

REACTIONS (2)
  - CONVULSION [None]
  - DEATH [None]
